FAERS Safety Report 5741549-9 (Version None)
Quarter: 2008Q2

REPORT INFORMATION
  Report Type: 
  Country: None (occurrence: None)
  Receive Date: 20080519
  Receipt Date: 20080331
  Transmission Date: 20081010
  Serious: Yes (Hospitalization, Other)
  Sender: FDA-Public Use
  Company Number: US-BAYER-200712046BWH

PATIENT
  Age: 74 Year
  Sex: Female
  Weight: 54 kg

DRUGS (64)
  1. SORAFENIB [Suspect]
     Indication: NON-SMALL CELL LUNG CANCER METASTATIC
     Dosage: TOTAL DAILY DOSE: 400 MG  UNIT DOSE: 200 MG
     Route: 048
     Dates: start: 20070222, end: 20070311
  2. SORAFENIB [Suspect]
     Dosage: TOTAL DAILY DOSE: 400 MG  UNIT DOSE: 200 MG
     Route: 048
     Dates: start: 20070531, end: 20070617
  3. SORAFENIB [Suspect]
     Dosage: TOTAL DAILY DOSE: 400 MG  UNIT DOSE: 200 MG
     Route: 048
     Dates: start: 20070315, end: 20070401
  4. SORAFENIB [Suspect]
     Dosage: TOTAL DAILY DOSE: 400 MG  UNIT DOSE: 200 MG
     Route: 048
     Dates: start: 20070406, end: 20070423
  5. SORAFENIB [Suspect]
     Dosage: TOTAL DAILY DOSE: 400 MG  UNIT DOSE: 200 MG
     Route: 048
     Dates: start: 20070626, end: 20070629
  6. SORAFENIB [Suspect]
     Dosage: TOTAL DAILY DOSE: 400 MG  UNIT DOSE: 200 MG
     Route: 048
     Dates: start: 20070510, end: 20070527
  7. CARBOPLATIN [Suspect]
     Indication: NON-SMALL CELL LUNG CANCER METASTATIC
     Route: 042
     Dates: start: 20070221, end: 20070221
  8. CARBOPLATIN [Suspect]
     Route: 042
     Dates: start: 20070314, end: 20070314
  9. CARBOPLATIN [Suspect]
     Route: 042
     Dates: start: 20070530, end: 20070530
  10. CARBOPLATIN [Suspect]
     Route: 042
     Dates: start: 20070509, end: 20070509
  11. CARBOPLATIN [Suspect]
     Route: 042
     Dates: start: 20070625, end: 20070625
  12. CARBOPLATIN [Suspect]
     Route: 042
     Dates: start: 20070405, end: 20070405
  13. TAXOL [Suspect]
     Indication: NON-SMALL CELL LUNG CANCER METASTATIC
     Dosage: UNIT DOSE: 200 MG/M2
     Route: 042
     Dates: start: 20070405, end: 20070405
  14. TAXOL [Suspect]
     Dosage: UNIT DOSE: 200 MG/M2
     Route: 042
     Dates: start: 20070221, end: 20070221
  15. TAXOL [Suspect]
     Dosage: UNIT DOSE: 200 MG/M2
     Route: 042
     Dates: start: 20070509, end: 20070509
  16. TAXOL [Suspect]
     Dosage: UNIT DOSE: 200 MG/M2
     Route: 042
     Dates: start: 20070530, end: 20070530
  17. TAXOL [Suspect]
     Dosage: UNIT DOSE: 200 MG/M2
     Route: 042
     Dates: start: 20070314, end: 20070314
  18. TAXOL [Suspect]
     Dosage: UNIT DOSE: 200 MG/M2
     Route: 042
     Dates: start: 20070625, end: 20070625
  19. CARDIZEM [Concomitant]
     Indication: ANGINA PECTORIS
     Route: 048
     Dates: start: 19980101
  20. GUAIFENESIN [Concomitant]
     Indication: CHRONIC OBSTRUCTIVE PULMONARY DISEASE
     Route: 048
     Dates: start: 19920101
  21. DIOVAN [Concomitant]
     Indication: HYPERTENSION
     Route: 048
     Dates: start: 19920101
  22. ZOLOFT [Concomitant]
     Indication: DEPRESSION
     Route: 048
     Dates: start: 19970101
  23. SYNTHROID [Concomitant]
     Indication: HYPOTHYROIDISM
     Route: 048
     Dates: start: 19750101
  24. PLAVIX [Concomitant]
     Indication: ARTERIOSCLEROSIS
     Route: 048
     Dates: start: 19980101
  25. ALBUTEROL [Concomitant]
     Indication: CHRONIC OBSTRUCTIVE PULMONARY DISEASE
     Dates: start: 19990101
  26. ALBUTEROL [Concomitant]
  27. ADVAIR DISKUS 100/50 [Concomitant]
     Indication: CHRONIC OBSTRUCTIVE PULMONARY DISEASE
     Dates: start: 19990101
  28. METOPROLOL TARTRATE [Concomitant]
     Indication: HYPERTENSION
     Route: 048
     Dates: start: 19920101
  29. PLETAL [Concomitant]
     Indication: INTERMITTENT CLAUDICATION
     Dosage: TOTAL DAILY DOSE: 100 MG
     Route: 048
  30. COUMADIN [Concomitant]
     Indication: ANTICOAGULANT THERAPY
     Route: 048
     Dates: start: 20070201, end: 20070318
  31. COUMADIN [Concomitant]
     Route: 048
     Dates: start: 20070319, end: 20070404
  32. COUMADIN [Concomitant]
     Route: 048
     Dates: start: 20070405
  33. METFORMIN HCL [Concomitant]
     Indication: DIABETES MELLITUS
     Route: 048
     Dates: start: 20040101
  34. FERROUS GLUCONATE [Concomitant]
     Indication: IRON DEFICIENCY ANAEMIA
     Route: 048
  35. LANOXIN [Concomitant]
     Indication: CARDIAC FAILURE CONGESTIVE
     Route: 048
     Dates: start: 19980101
  36. TENEX [Concomitant]
     Indication: HYPERTENSION
     Route: 048
     Dates: start: 19920101
  37. PRAVACHOL [Concomitant]
     Indication: HYPERCHOLESTEROLAEMIA
     Route: 048
     Dates: start: 20010101
  38. NEXIUM [Concomitant]
     Indication: GASTROOESOPHAGEAL REFLUX DISEASE
     Route: 048
     Dates: start: 19890101
  39. PREMARIN [Concomitant]
     Indication: MENOPAUSE
     Route: 048
  40. MECLIZINE [Concomitant]
     Indication: DIZZINESS
     Route: 048
     Dates: start: 20020101
  41. MICRO-K [Concomitant]
  42. OS-CAL [Concomitant]
     Dosage: TOTAL DAILY DOSE: 1200 MG
  43. TOBRADEX [Concomitant]
     Route: 047
  44. FERROUS SULFATE TAB [Concomitant]
  45. OXYCODONE HCL EXTENDED-RELEASE [Concomitant]
     Dosage: TOTAL DAILY DOSE: 20 MG
     Route: 048
  46. OXYCODONE HCL [Concomitant]
     Indication: PAIN
     Dosage: TOTAL DAILY DOSE: 30 MG
     Route: 048
  47. ONDANSETRON [Concomitant]
     Indication: NAUSEA
     Route: 048
  48. PHENERGAN [Concomitant]
     Indication: NAUSEA
     Route: 054
  49. CARISOPRODOL [Concomitant]
     Indication: MUSCLE SPASMS
     Dosage: TOTAL DAILY DOSE: 1050 MG
  50. CARISOPRODOL [Concomitant]
     Dates: start: 19990101
  51. CHLORAZEPATE [Concomitant]
     Dosage: TOTAL DAILY DOSE: 30 MG
     Route: 048
  52. FOSAMAX [Concomitant]
     Indication: OSTEOPOROSIS
     Route: 048
     Dates: start: 20030101
  53. FOSAMAX [Concomitant]
     Route: 048
  54. ALBUTEROL INHALER NEBULIZER [Concomitant]
  55. ATROVENT [Concomitant]
  56. MAGNESIUM OXIDE [Concomitant]
     Route: 048
  57. FIBERTAB [Concomitant]
     Route: 048
  58. BACTRIM DS [Concomitant]
     Route: 048
  59. POTASSIUM CHLORIDE [Concomitant]
     Route: 048
  60. BENTYL [Concomitant]
     Dosage: TOTAL DAILY DOSE: 80 MG
  61. LOMOTIL [Concomitant]
     Route: 048
  62. ALPRAZOLAM [Concomitant]
     Indication: ANXIETY
     Route: 048
     Dates: start: 19950101
  63. FERROUS GLUCONATE [Concomitant]
     Indication: MINERAL SUPPLEMENTATION
     Route: 048
     Dates: start: 20070212
  64. CALCIUM D [Concomitant]
     Indication: MINERAL SUPPLEMENTATION
     Route: 048
     Dates: start: 19920101

REACTIONS (3)
  - BETA HAEMOLYTIC STREPTOCOCCAL INFECTION [None]
  - BRADYCARDIA [None]
  - RENAL FAILURE [None]
